FAERS Safety Report 11087571 (Version 1)
Quarter: 2015Q2

REPORT INFORMATION
  Report Type: Spontaneous
  Country: US (occurrence: US)
  Receive Date: 20150504
  Receipt Date: 20150504
  Transmission Date: 20150821
  Serious: Yes (Hospitalization, Other)
  Sender: FDA-Public Use
  Company Number: US-ACTAVIS-2015-08787

PATIENT
  Age: 30 Year
  Sex: Female

DRUGS (5)
  1. PREDNISONE (WATSON LABORATORIES) [Interacting]
     Active Substance: PREDNISONE
     Dosage: 40 MG, DAILY
     Route: 065
  2. CLARITHROMYCIN EXTENDED RELEASE [Interacting]
     Active Substance: CLARITHROMYCIN
     Indication: ACUTE SINUSITIS
     Dosage: 1000 MG, DAILY
     Route: 065
  3. PREDNISONE (WATSON LABORATORIES) [Suspect]
     Active Substance: PREDNISONE
     Indication: ACUTE SINUSITIS
     Dosage: 60 MG, DAILY
     Route: 065
  4. FAMCICLOVIR. [Concomitant]
     Active Substance: FAMCICLOVIR
     Indication: PRODUCT USED FOR UNKNOWN INDICATION
     Dosage: UNK
     Route: 065
  5. PREDNISONE (WATSON LABORATORIES) [Interacting]
     Active Substance: PREDNISONE
     Dosage: 20 MG, DAILY
     Route: 065

REACTIONS (3)
  - Therapy cessation [None]
  - Mania [Recovered/Resolved]
  - Drug interaction [Recovered/Resolved]
